FAERS Safety Report 7077080-0 (Version None)
Quarter: 2010Q4

REPORT INFORMATION
  Report Type: 
  Country: None (occurrence: None)
  Receive Date: 20101101
  Receipt Date: 20101018
  Transmission Date: 20110411
  Serious: No
  Sender: FDA-Public Use
  Company Number: BR-ROCHE-735017

PATIENT
  Age: 19 Year
  Sex: Female

DRUGS (2)
  1. ROACUTAN [Suspect]
     Indication: ACNE
     Route: 048
     Dates: start: 20090101, end: 20090101
  2. ROACUTAN [Suspect]
     Dosage: ONE CAPSULE DAILY
     Route: 048
     Dates: start: 20100801, end: 20101001

REACTIONS (2)
  - NO ADVERSE EVENT [None]
  - PREGNANCY [None]
